FAERS Safety Report 11890119 (Version 1)
Quarter: 2016Q1

REPORT INFORMATION
  Report Type: Spontaneous
  Country: US (occurrence: US)
  Receive Date: 20160105
  Receipt Date: 20160105
  Transmission Date: 20160526
  Serious: No
  Sender: FDA-Public Use
  Company Number: US-HALOZYME THERAPEUTICS, INC.-2015-US-HYL-01247

PATIENT

DRUGS (1)
  1. HYLENEX RECOMBINANT [Suspect]
     Active Substance: HYALURONIDASE (HUMAN RECOMBINANT)
     Indication: POST PROCEDURAL COMPLICATION
     Dosage: UNK
     Route: 058
     Dates: start: 201404

REACTIONS (3)
  - Administration site scar [Not Recovered/Not Resolved]
  - Injection site reaction [Not Recovered/Not Resolved]
  - Skin oedema [Not Recovered/Not Resolved]

NARRATIVE: CASE EVENT DATE: 201404
